FAERS Safety Report 15266308 (Version 4)
Quarter: 2019Q3

REPORT INFORMATION
  Report Type: Spontaneous
  Country: US (occurrence: US)
  Receive Date: 20180810
  Receipt Date: 20190827
  Transmission Date: 20191004
  Serious: Yes (Other)
  Sender: FDA-Public Use
  Company Number: US-PFIZER INC-2018323157

PATIENT
  Age: 47 Year
  Sex: Male
  Weight: 91 kg

DRUGS (7)
  1. LYRICA [Suspect]
     Active Substance: PREGABALIN
     Indication: NEURALGIA
     Dosage: 300 MG, 2X/DAY
     Route: 048
     Dates: start: 20070813, end: 20180718
  2. OXCARBAZEPINE. [Concomitant]
     Active Substance: OXCARBAZEPINE
     Indication: PAIN
     Dosage: 300 MG, 1X/DAY, AT BEDTIME
     Route: 048
  3. TOPIRAMATE. [Concomitant]
     Active Substance: TOPIRAMATE
     Indication: NEURALGIA
  4. TRAMADOL. [Concomitant]
     Active Substance: TRAMADOL
     Indication: NEURALGIA
  5. TRAMADOL. [Concomitant]
     Active Substance: TRAMADOL
     Indication: PAIN
     Dosage: 100 MG, AS NEEDED (50 MG TABLET 2 TABLETS EVERY 6 HOURS AS NEEDED)
     Route: 048
  6. TOPIRAMATE. [Concomitant]
     Active Substance: TOPIRAMATE
     Indication: PAIN
     Dosage: 100 MG, 2X/DAY
     Route: 048
  7. OXCARBAZEPINE. [Concomitant]
     Active Substance: OXCARBAZEPINE
     Indication: NEURALGIA

REACTIONS (12)
  - Withdrawal syndrome [Not Recovered/Not Resolved]
  - Vomiting [Unknown]
  - Restless legs syndrome [Unknown]
  - Expired product administered [Unknown]
  - Diabetes mellitus [Unknown]
  - Hypertension [Unknown]
  - Blood cholesterol increased [Unknown]
  - Chills [Unknown]
  - Phantom limb syndrome [Unknown]
  - Nausea [Unknown]
  - Feeling hot [Unknown]
  - Abdominal pain upper [Unknown]

NARRATIVE: CASE EVENT DATE: 2018
